FAERS Safety Report 13909573 (Version 2)
Quarter: 2017Q4

REPORT INFORMATION
  Report Type: Spontaneous
  Country: US (occurrence: US)
  Receive Date: 20170828
  Receipt Date: 20171005
  Transmission Date: 20180320
  Serious: No
  Sender: FDA-Public Use
  Company Number: US-PFIZER INC-2017367442

PATIENT
  Age: 71 Year
  Sex: Female
  Weight: 59 kg

DRUGS (5)
  1. NATURE-THROID [Concomitant]
     Active Substance: THYROID, PORCINE
     Indication: THYROID HORMONE REPLACEMENT THERAPY
     Dosage: 81.25 MG, AS NEEDED (EVERY DAY)
     Dates: start: 20170321
  2. ESTRING [Suspect]
     Active Substance: ESTRADIOL
     Indication: HORMONE REPLACEMENT THERAPY
     Dosage: 2 MG, EVERY 3 MONTHS (1 VAGINAL RING EVERY 90 DAYS)
     Route: 067
     Dates: start: 20140723
  3. ESTRING [Suspect]
     Active Substance: ESTRADIOL
     Indication: ATROPHIC VULVOVAGINITIS
     Dosage: 2 MG, EVERY 3 MONTHS (1 VAGINAL RING EVERY 90 DAYS)
     Route: 067
     Dates: start: 20170730, end: 20170818
  4. VIVELLE-DOT [Concomitant]
     Active Substance: ESTRADIOL
     Indication: HORMONE REPLACEMENT THERAPY
     Dosage: 0.05 MG, AS NEEDED (1 PATCH TWICE WEEKLY)
     Dates: start: 20120211
  5. PROGESTERONE. [Concomitant]
     Active Substance: PROGESTERONE
     Indication: HORMONE REPLACEMENT THERAPY
     Dosage: 100 MG, AS NEEDED (AT BEDTIME)
     Dates: start: 20121211

REACTIONS (2)
  - Vulvovaginal discomfort [Recovered/Resolved]
  - Vulvovaginal pain [Recovered/Resolved]

NARRATIVE: CASE EVENT DATE: 20170730
